FAERS Safety Report 8248166-X (Version None)
Quarter: 2012Q1

REPORT INFORMATION
  Report Type: 
  Country: None (occurrence: None)
  Receive Date: 20120330
  Receipt Date: 20120201
  Transmission Date: 20120608
  Serious: Yes (Other)
  Sender: FDA-Public Use
  Company Number: CHPA2012US005705

PATIENT
  Sex: Female

DRUGS (1)
  1. TRANSDERM VOYAGER [Suspect]
     Indication: NAUSEA
     Dosage: UNK, UNK
     Route: 062

REACTIONS (5)
  - APPLICATION SITE IRRITATION [None]
  - OFF LABEL USE [None]
  - DEMENTIA [None]
  - MALAISE [None]
  - ACTIVITIES OF DAILY LIVING IMPAIRED [None]
